FAERS Safety Report 18039173 (Version 2)
Quarter: 2020Q3

REPORT INFORMATION
  Report Type: Spontaneous
  Country: US (occurrence: US)
  Receive Date: 20200718
  Receipt Date: 20200731
  Transmission Date: 20201103
  Serious: Yes (Hospitalization, Other)
  Sender: FDA-Public Use
  Company Number: US-ACCORD-190932

PATIENT
  Age: 51 Year
  Sex: Male

DRUGS (26)
  1. ATORVASTATIN/ATORVASTATIN CALCIUM [Concomitant]
     Active Substance: ATORVASTATIN CALCIUM
     Dosage: 20 MG
  2. CEFTRIAXONE/CEFTRIAXONE SODIUM [Concomitant]
     Active Substance: CEFTRIAXONE SODIUM
     Dosage: 1000 MG
     Dates: start: 20190416
  3. OSELTAMIVIR/OSELTAMIVIR PHOSPHATE [Concomitant]
     Active Substance: OSELTAMIVIR PHOSPHATE
     Dates: start: 201904
  4. CLOZAPINE. [Interacting]
     Active Substance: CLOZAPINE
     Indication: SCHIZOAFFECTIVE DISORDER
     Route: 048
     Dates: start: 20180615
  5. HALOPERIDOL. [Concomitant]
     Active Substance: HALOPERIDOL
     Indication: SCHIZOAFFECTIVE DISORDER
     Dosage: 5 CONSECUTIVE DOSES ?5 MG WITHIN 24 HOURS
     Route: 042
     Dates: start: 20190417
  6. ACICLOVIR [Concomitant]
     Active Substance: ACYCLOVIR
     Dosage: 1460 MG
     Dates: start: 20190418
  7. AZITHROMYCIN ANHYDROUS. [Concomitant]
     Active Substance: AZITHROMYCIN ANHYDROUS
     Dosage: 500 MG
     Dates: start: 20190416
  8. LOVENOX [Concomitant]
     Active Substance: ENOXAPARIN SODIUM
     Dosage: 40 MG
     Dates: start: 20190416, end: 20190416
  9. TYLENOL [Concomitant]
     Active Substance: ACETAMINOPHEN
     Dosage: 325 MG
     Dates: start: 20190418
  10. CEFTRIAXONE/CEFTRIAXONE SODIUM [Concomitant]
     Active Substance: CEFTRIAXONE SODIUM
     Dosage: 4 GM
     Dates: start: 20190418
  11. OLANZAPINE. [Concomitant]
     Active Substance: OLANZAPINE
     Dosage: 10 MG PRN ONCE ONLY
  12. PARACETAMOL [Concomitant]
     Active Substance: ACETAMINOPHEN
     Dosage: 2000 MG?650 MG
     Dates: start: 20190415
  13. LORAZEPAM. [Concomitant]
     Active Substance: LORAZEPAM
     Dosage: 1 MG
     Dates: start: 20190418
  14. DILAUDID [Concomitant]
     Active Substance: HYDROMORPHONE HYDROCHLORIDE
     Dosage: 0.5 MG
     Dates: start: 20190418
  15. LAMOTRIGINE. [Concomitant]
     Active Substance: LAMOTRIGINE
     Indication: SCHIZOAFFECTIVE DISORDER BIPOLAR TYPE
  16. COLECALCIFEROL [Concomitant]
     Active Substance: CHOLECALCIFEROL
     Dosage: 2000IU
  17. VANCOMYCIN/VANCOMYCIN HYDROCHLORIDE [Concomitant]
     Active Substance: VANCOMYCIN HYDROCHLORIDE
     Dosage: 1750 MG
     Dates: start: 20190418
  18. LURASIDONE [Concomitant]
     Active Substance: LURASIDONE
     Dosage: 60 MG
  19. VANCOMYCIN/VANCOMYCIN HYDROCHLORIDE [Concomitant]
     Active Substance: VANCOMYCIN HYDROCHLORIDE
     Dosage: 2000MG?1750 MG
     Dates: start: 20190416
  20. PARACETAMOL [Concomitant]
     Active Substance: ACETAMINOPHEN
     Dosage: 650 MG
     Dates: start: 20190416, end: 20190417
  21. PARACETAMOL [Concomitant]
     Active Substance: ACETAMINOPHEN
     Dosage: 1000 MG
     Dates: start: 201904
  22. CLOZAPINE. [Suspect]
     Active Substance: CLOZAPINE
     Indication: SCHIZOAFFECTIVE DISORDER
     Dosage: 450 MG/DAY
     Dates: start: 20180627, end: 20190414
  23. AZITHROMYCIN ANHYDROUS. [Concomitant]
     Active Substance: AZITHROMYCIN ANHYDROUS
     Dosage: 250 MG
     Dates: start: 20190418
  24. PIPERACILLIN SODIUM/TAZOBACTAM [Concomitant]
     Active Substance: PIPERACILLIN SODIUM\TAZOBACTAM SODIUM
     Dosage: 4.5 GM
     Dates: start: 20190415
  25. METOPROLOL. [Concomitant]
     Active Substance: METOPROLOL
     Dosage: 25 MG
     Dates: start: 20190416, end: 20190417
  26. NICOTINE/NICOTINE BITARTRATE/NICOTINE POLACRILEX [Concomitant]
     Active Substance: NICOTINE
     Dosage: 14 MG, PATCH
     Dates: start: 20190416

REACTIONS (6)
  - Neuroleptic malignant syndrome [Recovering/Resolving]
  - Drug level increased [Recovered/Resolved]
  - Pneumonia streptococcal [Recovering/Resolving]
  - Sepsis [Recovering/Resolving]
  - Drug-disease interaction [Unknown]
  - Meningitis bacterial [Recovering/Resolving]

NARRATIVE: CASE EVENT DATE: 201904
